FAERS Safety Report 5533359-2 (Version None)
Quarter: 2007Q4

REPORT INFORMATION
  Report Type: 
  Country: None (occurrence: None)
  Receive Date: 20071128
  Receipt Date: 20071115
  Transmission Date: 20080405
  Serious: Yes (Hospitalization)
  Sender: FDA-Public Use
  Company Number: CLOF-10770

PATIENT
  Age: 67 Year
  Sex: Female

DRUGS (1)
  1. CLOFARABINE, MFR: GENZYME [Suspect]
     Indication: ACUTE MYELOID LEUKAEMIA
     Dates: start: 20071031

REACTIONS (1)
  - MELAENA [None]
